FAERS Safety Report 20257908 (Version 1)
Quarter: 2021Q4

REPORT INFORMATION
  Report Type: Spontaneous
  Country: RO (occurrence: RO)
  Receive Date: 20211230
  Receipt Date: 20211230
  Transmission Date: 20220303
  Serious: Yes (Other)
  Sender: FDA-Public Use
  Company Number: RO-002147023-NVSC2021RO273002

PATIENT
  Age: 82 Year
  Sex: Male

DRUGS (6)
  1. EVEROLIMUS [Suspect]
     Active Substance: EVEROLIMUS
     Indication: Metastatic renal cell carcinoma
     Dosage: UNK
     Route: 065
  2. TEMSIROLIMUS [Suspect]
     Active Substance: TEMSIROLIMUS
     Indication: Renal neoplasm
     Dosage: UNK
     Route: 065
     Dates: start: 201405, end: 201407
  3. TEMSIROLIMUS [Suspect]
     Active Substance: TEMSIROLIMUS
     Indication: Metastatic renal cell carcinoma
  4. ISOPTIN [Concomitant]
     Active Substance: VERAPAMIL HYDROCHLORIDE
     Indication: Nephrotic syndrome
     Dosage: UNK
     Route: 065
     Dates: start: 201206, end: 201506
  5. ENALAPRIL MALEATE [Concomitant]
     Active Substance: ENALAPRIL MALEATE
     Indication: Nephrotic syndrome
     Dosage: UNK
     Route: 065
     Dates: start: 201206, end: 201506
  6. PENTOXI [Concomitant]
     Indication: Nephrotic syndrome
     Dosage: UNK
     Route: 065
     Dates: start: 201206, end: 201506

REACTIONS (6)
  - Hypothyroidism [Unknown]
  - Autoimmune thyroiditis [Unknown]
  - Metastases to lymph nodes [Unknown]
  - Malignant neoplasm progression [Unknown]
  - Renal cell carcinoma [Unknown]
  - Metastases to lung [Unknown]

NARRATIVE: CASE EVENT DATE: 20131001
